FAERS Safety Report 23429995 (Version 27)
Quarter: 2024Q3

REPORT INFORMATION
  Report Type: Spontaneous
  Country: CA (occurrence: CA)
  Receive Date: 20240122
  Receipt Date: 20240925
  Transmission Date: 20241017
  Serious: Yes (Hospitalization, Other)
  Sender: JOHNSON AND JOHNSON
  Company Number: CA-JNJFOC-20240124984

PATIENT
  Age: 42 Year
  Sex: Male

DRUGS (7)
  1. INVEGA SUSTENNA [Suspect]
     Active Substance: PALIPERIDONE PALMITATE
     Indication: Product used for unknown indication
     Route: 030
     Dates: start: 20240501
  2. INVEGA SUSTENNA [Suspect]
     Active Substance: PALIPERIDONE PALMITATE
     Route: 030
  3. INVEGA SUSTENNA [Suspect]
     Active Substance: PALIPERIDONE PALMITATE
     Route: 030
     Dates: start: 2022
  4. ABILIFY [Suspect]
     Active Substance: ARIPIPRAZOLE
     Indication: Product used for unknown indication
     Route: 065
  5. ABILIFY [Suspect]
     Active Substance: ARIPIPRAZOLE
     Route: 065
  6. BROMOCRIPTINE [Suspect]
     Active Substance: BROMOCRIPTINE
     Indication: Product used for unknown indication
     Route: 065
  7. CLONAZEPAM [Concomitant]
     Active Substance: CLONAZEPAM

REACTIONS (25)
  - Dysphonia [Recovering/Resolving]
  - Diabetes mellitus [Unknown]
  - Prolactin-producing pituitary tumour [Unknown]
  - Autism spectrum disorder [Not Recovered/Not Resolved]
  - Asphyxia [Unknown]
  - Neutropenia [Unknown]
  - Blood triglycerides increased [Unknown]
  - Male sexual dysfunction [Not Recovered/Not Resolved]
  - Language disorder [Not Recovered/Not Resolved]
  - Communication disorder [Not Recovered/Not Resolved]
  - Blood prolactin increased [Unknown]
  - Infertility [Not Recovered/Not Resolved]
  - White blood cell count increased [Unknown]
  - Back disorder [Not Recovered/Not Resolved]
  - Somnolence [Unknown]
  - Full blood count abnormal [Not Recovered/Not Resolved]
  - Abnormal behaviour [Unknown]
  - Drug ineffective [Unknown]
  - Eye disorder [Unknown]
  - Ejaculation failure [Unknown]
  - Muscle rigidity [Unknown]
  - Libido decreased [Unknown]
  - Movement disorder [Unknown]
  - Pain in extremity [Not Recovered/Not Resolved]
  - Tongue movement disturbance [Not Recovered/Not Resolved]
